FAERS Safety Report 19511718 (Version 1)
Quarter: 2021Q3

REPORT INFORMATION
  Report Type: Spontaneous
  Country: US (occurrence: US)
  Receive Date: 20210709
  Receipt Date: 20210709
  Transmission Date: 20211014
  Serious: No
  Sender: FDA-Public Use
  Company Number: US-SA-2021SA225739

PATIENT
  Age: 53 Year
  Sex: Female

DRUGS (1)
  1. LEMTRADA [Suspect]
     Active Substance: ALEMTUZUMAB
     Route: 042

REACTIONS (5)
  - Accident [Unknown]
  - Unevaluable event [Unknown]
  - Dysuria [Unknown]
  - Pain [Unknown]
  - Limb operation [Unknown]

NARRATIVE: CASE EVENT DATE: 2021
